FAERS Safety Report 4699061-4 (Version None)
Quarter: 2005Q2

REPORT INFORMATION
  Report Type: 
  Country: None (occurrence: None)
  Receive Date: 20050624
  Receipt Date: 20050617
  Transmission Date: 20051028
  Serious: Yes (Hospitalization, Other)
  Sender: FDA-Public Use
  Company Number: US-BRISTOL-MYERS SQUIBB COMPANY-13008438

PATIENT
  Age: 56 Year
  Sex: Male
  Weight: 84 kg

DRUGS (15)
  1. CETUXIMAB [Suspect]
     Indication: OESOPHAGEAL CARCINOMA
  2. CISPLATIN [Suspect]
     Indication: OESOPHAGEAL CARCINOMA
     Route: 042
     Dates: start: 20050601, end: 20050601
  3. IRINOTECAN [Suspect]
     Indication: OESOPHAGEAL CARCINOMA
     Route: 042
     Dates: start: 20050601, end: 20050601
  4. RADIATION THERAPY [Suspect]
     Indication: OESOPHAGEAL CARCINOMA
  5. AMBIEN [Concomitant]
  6. ATIVAN [Concomitant]
  7. CLINDAMYCIN [Concomitant]
  8. COMPAZINE [Concomitant]
  9. DECADRON [Concomitant]
  10. HYDROXYZINE [Concomitant]
  11. LEVAQUIN [Concomitant]
  12. LIDOCAINE [Concomitant]
  13. LOMOTIL [Concomitant]
  14. ROXANOL [Concomitant]
  15. ZOFRAN [Concomitant]

REACTIONS (5)
  - DEHYDRATION [None]
  - DIARRHOEA [None]
  - FATIGUE [None]
  - NEUTROPENIA [None]
  - PYREXIA [None]
